FAERS Safety Report 9921693 (Version 1)
Quarter: 2014Q1

REPORT INFORMATION
  Report Type: Spontaneous
  Country: US (occurrence: US)
  Receive Date: 20140225
  Receipt Date: 20140225
  Transmission Date: 20141002
  Serious: Yes (Hospitalization, Other)
  Sender: FDA-Public Use
  Company Number: US-AMGEN-USASP2014012039

PATIENT
  Age: 58 Year
  Sex: Female

DRUGS (7)
  1. PROLIA [Suspect]
     Indication: OSTEOPENIA
     Dosage: UNK
     Route: 065
     Dates: start: 201302
  2. PLAQUENIL                          /00072602/ [Concomitant]
  3. PREVACID [Concomitant]
  4. LYRICA [Concomitant]
  5. LISINOPRIL/HCTZ [Concomitant]
  6. SYNTHROID [Concomitant]
  7. EFFEXOR [Concomitant]

REACTIONS (6)
  - Back pain [Unknown]
  - Arthralgia [Unknown]
  - Pain in extremity [Not Recovered/Not Resolved]
  - Gait disturbance [Unknown]
  - Musculoskeletal pain [Unknown]
  - Cyst [Unknown]
